FAERS Safety Report 20845533 (Version 2)
Quarter: 2022Q3

REPORT INFORMATION
  Report Type: Spontaneous
  Country: US (occurrence: US)
  Receive Date: 20220518
  Receipt Date: 20220729
  Transmission Date: 20221026
  Serious: Yes (Other)
  Sender: FDA-Public Use
  Company Number: US-PFIZER INC-202200667994

PATIENT
  Age: 32 Year
  Sex: Male

DRUGS (1)
  1. XELJANZ [Suspect]
     Active Substance: TOFACITINIB CITRATE
     Indication: Colitis ulcerative
     Dosage: 10 MG, 2X/DAY, DOSE OR AMOUNT: 125 MG
     Route: 048
     Dates: start: 2019

REACTIONS (3)
  - Haematochezia [Unknown]
  - Off label use [Unknown]
  - Frequent bowel movements [Unknown]
